FAERS Safety Report 6637047-0 (Version None)
Quarter: 2010Q1

REPORT INFORMATION
  Report Type: 
  Country: None (occurrence: None)
  Receive Date: 20100316
  Receipt Date: 20100303
  Transmission Date: 20100710
  Serious: Yes (Hospitalization)
  Sender: FDA-Public Use
  Company Number: IE-MEDIMMUNE-MEDI-0010112

PATIENT
  Sex: Female
  Weight: 5.64 kg

DRUGS (4)
  1. SYNAGIS [Suspect]
     Route: 030
     Dates: start: 20091007, end: 20091007
  2. SYNAGIS [Suspect]
     Indication: HEART DISEASE CONGENITAL
  3. FUROSEMIDE [Concomitant]
     Route: 048
  4. SPIRONOLACTONE [Concomitant]
     Indication: CARDIAC FAILURE
     Route: 048

REACTIONS (5)
  - BRONCHIOLITIS [None]
  - COUGH [None]
  - RESPIRATORY TRACT INFECTION [None]
  - VOMITING [None]
  - WHEEZING [None]
